FAERS Safety Report 9965376 (Version 1)
Quarter: 2014Q1

REPORT INFORMATION
  Report Type: Report from Study
  Country: US (occurrence: US)
  Receive Date: 20140305
  Receipt Date: 20140305
  Transmission Date: 20141002
  Serious: No
  Sender: FDA-Public Use
  Company Number: US-ABBVIE-13P-163-1126507-00

PATIENT
  Sex: Male

DRUGS (5)
  1. HUMIRA [Suspect]
     Indication: CROHN^S DISEASE
     Dates: start: 20130405
  2. LISINOPRIL [Concomitant]
     Indication: HYPERTENSION
     Dosage: 20/12.5
  3. DOXAZOSIN [Concomitant]
     Indication: DYSURIA
     Dosage: AT BEDTIME
  4. ASACOL [Concomitant]
     Indication: CROHN^S DISEASE
     Dosage: 800 MG EVERY AM
  5. SINEQUAN [Concomitant]
     Indication: PRURITUS
     Dosage: EVERY NIGHT AT BEDTIME

REACTIONS (1)
  - Psoriasis [Not Recovered/Not Resolved]
